FAERS Safety Report 4796193-7 (Version None)
Quarter: 2005Q4

REPORT INFORMATION
  Report Type: 
  Country: None (occurrence: None)
  Receive Date: 20051007
  Receipt Date: 20050928
  Transmission Date: 20060501
  Serious: Yes (Hospitalization)
  Sender: FDA-Public Use
  Company Number: 2005075756

PATIENT
  Age: 73 Year
  Sex: Male
  Weight: 82.5547 kg

DRUGS (5)
  1. BEXTRA [Suspect]
     Indication: SPINAL COLUMN STENOSIS
     Dosage: 20 MG (20 MG, 1 IN 1 D), ORAL
     Route: 048
     Dates: start: 20021204, end: 20030110
  2. ATENOLOL [Concomitant]
  3. CALCIUM (CALCIUM) [Concomitant]
  4. CENTRUM SILVER (ASCORBIC ACID, CALCIUM, MINERALS NOS, RETINOL, TOCOPHE [Concomitant]
  5. TYLENOL [Concomitant]

REACTIONS (7)
  - ABDOMINAL PAIN [None]
  - ARTHROPATHY [None]
  - HIP ARTHROPLASTY [None]
  - PRURITUS [None]
  - RASH ERYTHEMATOUS [None]
  - STOMACH DISCOMFORT [None]
  - URTICARIA [None]
